FAERS Safety Report 9221590 (Version 1)
Quarter: 2013Q2

REPORT INFORMATION
  Report Type: Spontaneous
  Country: US (occurrence: US)
  Receive Date: 20130410
  Receipt Date: 20130410
  Transmission Date: 20140414
  Serious: No
  Sender: FDA-Public Use
  Company Number: US-009507513-1304USA003138

PATIENT
  Sex: Male

DRUGS (1)
  1. COSOPT PF [Suspect]
     Dosage: ONE DROP IN EACH EYE TWICE A DAY
     Route: 047
     Dates: start: 20130402

REACTIONS (2)
  - Drug dose omission [Unknown]
  - Product quality issue [Unknown]
